FAERS Safety Report 11535140 (Version 1)
Quarter: 2015Q3

REPORT INFORMATION
  Report Type: Spontaneous
  Country: US (occurrence: US)
  Receive Date: 20150903
  Receipt Date: 20150903
  Transmission Date: 20151125
  Serious: No
  Sender: FDA-Public Use
  Company Number: US-ELI_LILLY_AND_COMPANY-US201102006854

PATIENT
  Sex: Female
  Weight: 77.1 kg

DRUGS (1)
  1. HUMALOG MIX75/25 [Suspect]
     Active Substance: INSULIN LISPRO
     Indication: DIABETES MELLITUS
     Dosage: 8 U, 2/D

REACTIONS (3)
  - Drug dose omission [Recovered/Resolved]
  - Malaise [Unknown]
  - Asthenia [Unknown]
